FAERS Safety Report 7961142-7 (Version None)
Quarter: 2011Q4

REPORT INFORMATION
  Report Type: 
  Country: None (occurrence: None)
  Receive Date: 20111207
  Receipt Date: 20111202
  Transmission Date: 20120403
  Serious: Yes (Hospitalization, Congenital Anomaly, Other)
  Sender: FDA-Public Use
  Company Number: US-PFIZER INC-2010092582

PATIENT
  Sex: Female
  Weight: 2.7 kg

DRUGS (1)
  1. ZOLOFT [Suspect]
     Dosage: UNK
     Route: 064
     Dates: start: 20010101

REACTIONS (25)
  - PATENT DUCTUS ARTERIOSUS [None]
  - TRICUSPID VALVE DISEASE [None]
  - PREMATURE BABY [None]
  - INTESTINAL ISCHAEMIA [None]
  - SEPSIS NEONATAL [None]
  - NECROTISING COLITIS [None]
  - MOTOR DYSFUNCTION [None]
  - PULMONARY ARTERY STENOSIS CONGENITAL [None]
  - PULMONARY OEDEMA [None]
  - THROMBOCYTOSIS [None]
  - FOETAL EXPOSURE DURING PREGNANCY [None]
  - RESPIRATORY FAILURE [None]
  - CARDIOMEGALY [None]
  - PULMONARY VALVE INCOMPETENCE [None]
  - GENERALISED OEDEMA [None]
  - DRUG WITHDRAWAL SYNDROME NEONATAL [None]
  - CONGENITAL PULMONARY VALVE ATRESIA [None]
  - TRICUSPID VALVE INCOMPETENCE [None]
  - HYPOTHYROIDISM [None]
  - PULMONARY VALVE STENOSIS [None]
  - ATELECTASIS NEONATAL [None]
  - VENTRICULAR HYPOPLASIA [None]
  - ATRIAL SEPTAL DEFECT [None]
  - CARDIAC FAILURE CONGESTIVE [None]
  - LEFT VENTRICULAR HYPERTROPHY [None]
